FAERS Safety Report 24396512 (Version 1)
Quarter: 2024Q4

REPORT INFORMATION
  Report Type: Spontaneous
  Country: CN (occurrence: CN)
  Receive Date: 20241004
  Receipt Date: 20241004
  Transmission Date: 20250115
  Serious: Yes (Life-Threatening, Other)
  Sender: BAYER
  Company Number: CN-BAYER-2024A141682

PATIENT
  Age: 82 Year
  Sex: Female
  Weight: 70 kg

DRUGS (1)
  1. ULTRAVIST [Suspect]
     Active Substance: IOPROMIDE
     Indication: Computerised tomogram heart
     Dosage: 60 ML, ONCE
     Route: 042
     Dates: start: 20240930, end: 20240930

REACTIONS (7)
  - Anaphylactic shock [Recovering/Resolving]
  - Aphasia [None]
  - Vision blurred [None]
  - Dysphonia [Recovering/Resolving]
  - Hypoaesthesia [None]
  - Blood pressure decreased [Recovering/Resolving]
  - Dizziness [None]

NARRATIVE: CASE EVENT DATE: 20240930
